FAERS Safety Report 4355092-5 (Version None)
Quarter: 2004Q2

REPORT INFORMATION
  Report Type: 
  Country: None (occurrence: None)
  Receive Date: 20040504
  Receipt Date: 20040423
  Transmission Date: 20050107
  Serious: Yes (Hospitalization, Other)
  Sender: FDA-Public Use
  Company Number: USA-2002-0001487

PATIENT
  Age: 59 Year
  Sex: Male
  Weight: 108.8 kg

DRUGS (17)
  1. OXYCONTIN [Suspect]
     Indication: PAIN
     Dosage: SEE IMAGE
     Route: 048
     Dates: start: 20000922
  2. PAXIL [Concomitant]
  3. ZESTRIL [Concomitant]
  4. ACETAMINOPHEN AND HYDROCODONE BITARTRATE [Concomitant]
  5. VITAMIN C (ASCORBIC ACID) [Concomitant]
  6. ATIVAN [Concomitant]
  7. CEPHALEXIN [Concomitant]
  8. FE-TINIC (POLYSACCHARIDE-IRON COMPLEX) [Concomitant]
  9. PHENERGAN ^NATRAPHARM^ (PROMETHAZINE HYDROCHLORIDE) [Concomitant]
  10. SYNTHROID [Concomitant]
  11. ATENOLOL [Concomitant]
  12. PRILOSEC [Concomitant]
  13. SONATA [Concomitant]
  14. METHADONE (METHADONE) [Concomitant]
  15. VALIUM [Concomitant]
  16. CATAPRES (CLONIDIPINE) [Concomitant]
  17. NIFEREX (POLYSACCHARIDE-IRON COMPLEX) [Concomitant]

REACTIONS (35)
  - ABDOMINAL DISCOMFORT [None]
  - ABNORMAL DREAMS [None]
  - ANAEMIA POSTOPERATIVE [None]
  - ANXIETY [None]
  - ASTHENIA [None]
  - BLOOD ALKALINE PHOSPHATASE INCREASED [None]
  - BLOOD THYROID STIMULATING HORMONE INCREASED [None]
  - CONSTIPATION [None]
  - DEPRESSION [None]
  - DRUG DEPENDENCE [None]
  - DRUG INEFFECTIVE [None]
  - DRUG SCREEN POSITIVE [None]
  - DRUG WITHDRAWAL SYNDROME [None]
  - DRY SKIN [None]
  - EMOTIONAL DISTRESS [None]
  - FATIGUE [None]
  - HEADACHE [None]
  - HYPERHIDROSIS [None]
  - INADEQUATE ANALGESIA [None]
  - INSOMNIA [None]
  - MARKEDLY REDUCED DIETARY INTAKE [None]
  - MICTURITION URGENCY [None]
  - MUSCLE CRAMP [None]
  - NAUSEA [None]
  - NERVOUSNESS [None]
  - NOCTURIA [None]
  - OEDEMA PERIPHERAL [None]
  - OSTEOARTHRITIS [None]
  - PAIN [None]
  - RESTLESSNESS [None]
  - SEXUAL DYSFUNCTION [None]
  - SINUS BRADYCARDIA [None]
  - SUICIDAL IDEATION [None]
  - TREMOR [None]
  - VISUAL DISTURBANCE [None]
